FAERS Safety Report 13256807 (Version 1)
Quarter: 2017Q1

REPORT INFORMATION
  Report Type: Other
  Country: FR (occurrence: FR)
  Receive Date: 20170221
  Receipt Date: 20170221
  Transmission Date: 20170428
  Serious: Yes (Death, Life-Threatening)
  Sender: FDA-Public Use
  Company Number: FR-EMCURE PHARMS-2017HTG00029

PATIENT
  Age: 61 Year
  Sex: Male

DRUGS (4)
  1. ETOPOSIDE. [Suspect]
     Active Substance: ETOPOSIDE
     Indication: B-CELL LYMPHOMA
     Dosage: 340 MG, 1X/DAY
     Route: 042
     Dates: start: 20160324, end: 20160327
  2. MELPHALAN [Suspect]
     Active Substance: MELPHALAN
     Indication: B-CELL LYMPHOMA
     Dosage: 237 MG, ONCE
     Route: 042
     Dates: start: 20160328, end: 20160328
  3. BICNU [Suspect]
     Active Substance: CARMUSTINE
     Indication: B-CELL LYMPHOMA
     Dosage: 510 MG, ONCE
     Route: 042
     Dates: start: 20160323, end: 20160323
  4. CYTARABINE. [Suspect]
     Active Substance: CYTARABINE
     Indication: B-CELL LYMPHOMA
     Dosage: 680 MG, 1X/DAY
     Route: 042
     Dates: start: 20160324, end: 20160327

REACTIONS (4)
  - Bone marrow failure [Not Recovered/Not Resolved]
  - Enterococcal sepsis [Not Recovered/Not Resolved]
  - Lung disorder [Fatal]
  - Influenza [Not Recovered/Not Resolved]

NARRATIVE: CASE EVENT DATE: 20160329
